FAERS Safety Report 18194960 (Version 1)
Quarter: 2020Q3

REPORT INFORMATION
  Report Type: Spontaneous
  Country: US (occurrence: US)
  Receive Date: 20200825
  Receipt Date: 20200825
  Transmission Date: 20201103
  Serious: Yes (Other)
  Sender: FDA-Public Use
  Company Number: US-BAUSCH-BL-2020-023659

PATIENT
  Sex: Male

DRUGS (4)
  1. DICLOFENAC SODIUM EXTENDED RELEASE [Suspect]
     Active Substance: DICLOFENAC SODIUM
     Indication: JOINT SWELLING
  2. DICLOFENAC SODIUM EXTENDED RELEASE [Suspect]
     Active Substance: DICLOFENAC SODIUM
     Indication: PERIPHERAL SWELLING
  3. DICLOFENAC SODIUM EXTENDED RELEASE [Suspect]
     Active Substance: DICLOFENAC SODIUM
     Indication: ARTHRALGIA
     Route: 048
     Dates: start: 20200722, end: 20200726
  4. DICLOFENAC SODIUM EXTENDED RELEASE [Suspect]
     Active Substance: DICLOFENAC SODIUM
     Indication: PAIN IN EXTREMITY

REACTIONS (5)
  - Nausea [Not Recovered/Not Resolved]
  - Diarrhoea [Recovering/Resolving]
  - Melaena [Recovered/Resolved]
  - Hypophagia [Unknown]
  - Flatulence [Not Recovered/Not Resolved]

NARRATIVE: CASE EVENT DATE: 202007
